FAERS Safety Report 8540272-5 (Version None)
Quarter: 2012Q3

REPORT INFORMATION
  Report Type: 
  Country: None (occurrence: None)
  Receive Date: 20120726
  Receipt Date: 20120716
  Transmission Date: 20120928
  Serious: Yes (Other)
  Sender: FDA-Public Use
  Company Number: BR-ROCHE-1089012

PATIENT
  Sex: Female
  Weight: 65 kg

DRUGS (3)
  1. ACETAMINOPHEN [Concomitant]
     Indication: PAIN
  2. PEGASYS [Suspect]
     Indication: HEPATITIS C
     Route: 042
  3. COPEGUS [Suspect]
     Indication: HEPATITIS C
     Route: 048

REACTIONS (5)
  - BONE MARROW DISORDER [None]
  - SEPSIS [None]
  - ALOPECIA [None]
  - WHITE BLOOD CELL COUNT DECREASED [None]
  - ANAEMIA [None]
